FAERS Safety Report 6685247-6 (Version None)
Quarter: 2010Q2

REPORT INFORMATION
  Report Type: 
  Country: None (occurrence: None)
  Receive Date: 20100416
  Receipt Date: 20100409
  Transmission Date: 20101027
  Serious: Yes (Hospitalization)
  Sender: FDA-Public Use
  Company Number: CO-GENENTECH-300418

PATIENT
  Sex: Female

DRUGS (1)
  1. MABTHERA [Suspect]
     Indication: NEUROPATHY PERIPHERAL
     Dosage: 1000 MG, UNK
     Route: 042
     Dates: start: 20081028

REACTIONS (1)
  - CONVULSION [None]
